FAERS Safety Report 11391057 (Version 1)
Quarter: 2015Q3

REPORT INFORMATION
  Report Type: Spontaneous
  Country: GB (occurrence: None)
  Receive Date: 20150813
  Receipt Date: 20150813
  Transmission Date: 20151125
  Serious: Yes (Other)
  Sender: FDA-Public Use
  Company Number: 2015RR-099942

PATIENT
  Age: 71 Year
  Sex: Female

DRUGS (2)
  1. RANITIDINE (RANITIDINE) UNKNOWN [Suspect]
     Active Substance: RANITIDINE HYDROCHLORIDE
     Indication: GASTROOESOPHAGEAL REFLUX DISEASE
     Route: 048
     Dates: start: 20150507, end: 20150508
  2. OMEPRAZOLE. [Suspect]
     Active Substance: OMEPRAZOLE
     Indication: GASTROOESOPHAGEAL REFLUX DISEASE
     Dosage: 10 TO 20 MG PER 24 HOURS (TABLET)
     Route: 048
     Dates: start: 20111221, end: 20150515

REACTIONS (2)
  - Heart rate irregular [None]
  - Chest pain [None]
